FAERS Safety Report 9553648 (Version 1)
Quarter: 2013Q3

REPORT INFORMATION
  Report Type: Spontaneous
  Country: IN (occurrence: None)
  Receive Date: 20130923
  Receipt Date: 20130923
  Transmission Date: 20140515
  Serious: Yes (Life-Threatening, Hospitalization)
  Sender: FDA-Public Use
  Company Number: 2013P1019311

PATIENT
  Age: 34 Year
  Sex: Female

DRUGS (2)
  1. FENTANYL [Suspect]
     Indication: UMBILICAL HERNIA
     Route: 042
  2. PROPOFOL [Suspect]
     Dosage: 100 MCG/KG/MIN

REACTIONS (8)
  - Cardiogenic shock [None]
  - Nausea [None]
  - Vomiting [None]
  - Haemodynamic instability [None]
  - Tachycardia [None]
  - Oxygen saturation decreased [None]
  - Acute respiratory failure [None]
  - Hypokinesia [None]
